FAERS Safety Report 4913666-4 (Version None)
Quarter: 2006Q1

REPORT INFORMATION
  Report Type: 
  Country: None (occurrence: None)
  Receive Date: 20060216
  Receipt Date: 20060206
  Transmission Date: 20060701
  Serious: Yes (Death)
  Sender: FDA-Public Use
  Company Number: US-JNJFOC-20060100254

PATIENT
  Age: 86 Year
  Sex: Male
  Weight: 86.18 kg

DRUGS (1)
  1. RISPERDAL [Suspect]
     Indication: SLEEP DISORDER
     Route: 048

REACTIONS (2)
  - DEATH [None]
  - FEELING HOT [None]
